FAERS Safety Report 6992335-3 (Version None)
Quarter: 2010Q3

REPORT INFORMATION
  Report Type: 
  Country: None (occurrence: None)
  Receive Date: 20100917
  Receipt Date: 20100913
  Transmission Date: 20110219
  Serious: Yes (Hospitalization)
  Sender: FDA-Public Use
  Company Number: AR-SHIRE-SPV1-2009-00003

PATIENT
  Sex: Female
  Weight: 51.2 kg

DRUGS (9)
  1. VELAGLUCERASE ALFA [Suspect]
     Indication: GAUCHER'S DISEASE
     Dosage: 60 IU/KG, 1X/2WKS
     Route: 041
     Dates: start: 20080512
  2. INDOMETACINA [Concomitant]
     Indication: BACK PAIN
     Dosage: 50 UNK, 1X/DAY:QD
     Dates: start: 20081117
  3. ACETAMINOPHEN [Concomitant]
     Indication: BACK PAIN
     Dosage: 500 UNK, 3X/DAY:TID
     Dates: start: 20081201
  4. DEXAMETHASONE [Concomitant]
     Indication: SKIN REACTION
     Dosage: 8 MG, UNK
     Dates: start: 20081218
  5. DEXAMETHASONE [Concomitant]
     Dosage: 4 MG, UNK
     Dates: start: 20081222, end: 20081222
  6. CLORFENIRAMINA                     /00072501/ [Concomitant]
     Indication: SKIN REACTION
     Dosage: 10 MG, UNK
     Dates: start: 20081218
  7. DIPHENHYDRAMINE HCL [Concomitant]
     Dosage: UNK, UNK
     Dates: start: 20081222, end: 20081222
  8. CETIRIZINE HCL [Concomitant]
     Dosage: 10 MG, UNK
     Route: 048
  9. PREDNISONE [Concomitant]
     Indication: SKIN REACTION
     Dosage: 10 MG, UNK
     Route: 048

REACTIONS (1)
  - DERMATITIS ALLERGIC [None]
